FAERS Safety Report 14481950 (Version 1)
Quarter: 2018Q1

REPORT INFORMATION
  Report Type: Spontaneous
  Country: US (occurrence: US)
  Receive Date: 20180202
  Receipt Date: 20180202
  Transmission Date: 20180509
  Serious: Yes (Other)
  Sender: FDA-Public Use
  Company Number: None

PATIENT
  Age: 16 Year
  Sex: Female
  Weight: 49.05 kg

DRUGS (5)
  1. ROBITUSSIN (GUAIFENESIN) [Concomitant]
     Active Substance: GUAIFENESIN
  2. EXPECTORANT [Concomitant]
     Active Substance: GUAIFENESIN
  3. MOTRIN [Concomitant]
     Active Substance: IBUPROFEN
  4. TAMIFLU [Suspect]
     Active Substance: OSELTAMIVIR PHOSPHATE
     Indication: INFLUENZA
     Dosage: ?          QUANTITY:10 CAPSULE(S);?
     Route: 048
     Dates: start: 20180116, end: 20180117
  5. BENADRYL [Concomitant]
     Active Substance: DIPHENHYDRAMINE HYDROCHLORIDE

REACTIONS (4)
  - Hallucination, auditory [None]
  - Psychotic disorder [None]
  - Feeling abnormal [None]
  - Muscle contractions involuntary [None]

NARRATIVE: CASE EVENT DATE: 20180116
